FAERS Safety Report 7969797-8 (Version None)
Quarter: 2011Q4

REPORT INFORMATION
  Report Type: 
  Country: None (occurrence: None)
  Receive Date: 20111212
  Receipt Date: 20111130
  Transmission Date: 20120403
  Serious: Yes (Hospitalization)
  Sender: FDA-Public Use
  Company Number: US-BAYER-201022341NA

PATIENT
  Age: 32 Year
  Sex: Female
  Weight: 99.773 kg

DRUGS (6)
  1. MOTRIN [Concomitant]
  2. LIPITOR [Concomitant]
  3. LEVAQUIN [Concomitant]
  4. YASMIN [Suspect]
     Indication: ORAL CONTRACEPTION
     Dosage: UNK UNK, UNK
     Route: 048
     Dates: start: 20050401, end: 20070219
  5. IBUPROFEN (ADVIL) [Concomitant]
  6. ALBUTEROL [Concomitant]

REACTIONS (4)
  - DYSPNOEA [None]
  - ANXIETY [None]
  - PULMONARY EMBOLISM [None]
  - CHEST PAIN [None]
